FAERS Safety Report 18333627 (Version 1)
Quarter: 2020Q3

REPORT INFORMATION
  Report Type: Spontaneous
  Country: US (occurrence: US)
  Receive Date: 20200930
  Receipt Date: 20200930
  Transmission Date: 20201103
  Serious: Yes (Death)
  Sender: FDA-Public Use
  Company Number: None

PATIENT
  Age: 56 Year
  Sex: Male
  Weight: 62.8 kg

DRUGS (22)
  1. CEFTRIAXONE 1 GM IV ONCE DAILY [Concomitant]
     Dates: start: 20200629, end: 20200629
  2. MEROPENEM IV RENALLY ADJUSTED [Concomitant]
     Dates: start: 20200820, end: 20200827
  3. VANCOMYCIN PER PROTOCOL [Concomitant]
     Dates: start: 20200709, end: 20200722
  4. CONVALESCENT PLASMA [Concomitant]
     Active Substance: HUMAN PLASMA
     Dates: start: 20200702, end: 20200702
  5. FAMOTIDINE 20MG PO Q12HR [Concomitant]
     Dates: start: 20200716, end: 20200917
  6. ENOXAPARIN 70MG SQ Q12HR [Concomitant]
     Dates: start: 20200630, end: 20200717
  7. ENOXAPARIN 60MG SQ Q12HR [Concomitant]
     Dates: start: 20200726, end: 20200731
  8. ZINC SULFATE 220MG PO BID [Concomitant]
     Dates: start: 20200630, end: 20200716
  9. ASCORBIC ACID 1000MG PO TID [Concomitant]
     Dates: start: 20200630, end: 20200730
  10. AZITHROMYCIN 500MG PO ONCE DAILY [Concomitant]
     Dates: start: 20200630, end: 20200704
  11. ENOXAPARIN 40MG SQ ONCE DAILY [Concomitant]
     Dates: start: 20200718, end: 20200726
  12. REMDESIVIR. [Suspect]
     Active Substance: REMDESIVIR
     Indication: COVID-19 PNEUMONIA
     Route: 042
     Dates: start: 20200708, end: 20200712
  13. DEXAMETHASONE 10MG IV ONCE DAILY [Concomitant]
     Dates: start: 20200709, end: 20200709
  14. DEXAMETHASONE 6MG, 10MG IV ONCE DAILY [Concomitant]
     Dates: start: 20200709, end: 20200721
  15. MICAFUNGIN 100MG IV ONCE DAILY [Concomitant]
     Dates: start: 20200712, end: 20200813
  16. MICAFUNGIN 100MG IV ONCE DAILY [Concomitant]
     Dates: start: 20200916, end: 20200917
  17. METHYLPREDNISOLONE 60MG IV Q12HR, 40MG IV Q12HR [Concomitant]
     Dates: start: 20200630, end: 20200709
  18. CEFEPIME 1 GM IV Q6HR [Concomitant]
     Dates: start: 20200630, end: 20200715
  19. CEFTRIAXONE 1 GM IV ONCE DAILY [Concomitant]
     Dates: start: 20200706, end: 20200708
  20. VANCOMYCIN 1500MG IV ONCE [Concomitant]
     Dates: start: 20200917, end: 20200917
  21. CEFEPIME 1 GM IV Q8HR [Concomitant]
     Dates: start: 20200717, end: 20200807
  22. MEROPENEM 1 GM IV Q8HR [Concomitant]
     Dates: start: 20200917, end: 20200917

REACTIONS (10)
  - Pneumonia [None]
  - Pneumothorax [None]
  - Pupil fixed [None]
  - Hypovolaemic shock [None]
  - Supraventricular tachycardia [None]
  - Cardiac arrest [None]
  - Respiratory failure [None]
  - Fungaemia [None]
  - Hyponatraemia [None]
  - Septic shock [None]

NARRATIVE: CASE EVENT DATE: 20200917
